FAERS Safety Report 10084866 (Version 1)
Quarter: 2014Q2

REPORT INFORMATION
  Report Type: Spontaneous
  Country: FR (occurrence: FR)
  Receive Date: 20140417
  Receipt Date: 20140417
  Transmission Date: 20141212
  Serious: Yes (Hospitalization)
  Sender: FDA-Public Use
  Company Number: FR-ASTRAZENECA-2014SE25225

PATIENT
  Age: 11454 Day
  Sex: Female

DRUGS (2)
  1. DIPRIVAN [Suspect]
     Route: 040
     Dates: start: 20140312, end: 20140312
  2. CELOCURINE [Suspect]
     Route: 040
     Dates: start: 20140312, end: 20140312

REACTIONS (2)
  - Urticaria [Recovered/Resolved]
  - Laryngeal oedema [Recovered/Resolved]
